FAERS Safety Report 7708882-2 (Version None)
Quarter: 2011Q3

REPORT INFORMATION
  Report Type: 
  Country: None (occurrence: None)
  Receive Date: 20110825
  Receipt Date: 20110819
  Transmission Date: 20111222
  Serious: Yes (Other)
  Sender: FDA-Public Use
  Company Number: GB-SANOFI-AVENTIS-2011SA053393

PATIENT
  Age: 72 Year
  Sex: Male
  Weight: 74.6 kg

DRUGS (6)
  1. FYBOGEL [Concomitant]
  2. ORAMORPH SR [Concomitant]
  3. OXALIPLATIN [Suspect]
     Indication: COLON CANCER
     Route: 042
     Dates: start: 20110131
  4. CAPECITABINE [Suspect]
     Indication: COLON CANCER
     Route: 048
     Dates: start: 20110131
  5. DEXAMETHASONE [Concomitant]
     Route: 048
  6. ACETAMINOPHEN [Concomitant]

REACTIONS (3)
  - MUSCULAR WEAKNESS [None]
  - UNRESPONSIVE TO STIMULI [None]
  - STARING [None]
